FAERS Safety Report 17637630 (Version 1)
Quarter: 2020Q2

REPORT INFORMATION
  Report Type: Spontaneous
  Country: US (occurrence: US)
  Receive Date: 20200406
  Receipt Date: 20200406
  Transmission Date: 20200713
  Serious: Yes (Other)
  Sender: FDA-Public Use
  Company Number: None

PATIENT
  Age: 72 Year
  Sex: Female
  Weight: 89.81 kg

DRUGS (1)
  1. CHLORHEXIDINE GLUCONATE. [Suspect]
     Active Substance: CHLORHEXIDINE GLUCONATE
     Indication: ANTIBIOTIC PROPHYLAXIS

REACTIONS (17)
  - Myalgia [None]
  - Arthropathy [None]
  - Peripheral swelling [None]
  - Post procedural infection [None]
  - Quality of life decreased [None]
  - Loss of personal independence in daily activities [None]
  - Malaise [None]
  - Pain [None]
  - Skin burning sensation [None]
  - Migraine [None]
  - Eczema [None]
  - Psoriasis [None]
  - Wrong patient received product [None]
  - Secretion discharge [None]
  - Dysgraphia [None]
  - Hypoaesthesia [None]
  - Bone pain [None]

NARRATIVE: CASE EVENT DATE: 20180624
